FAERS Safety Report 7989933-7 (Version None)
Quarter: 2011Q4

REPORT INFORMATION
  Report Type: 
  Country: None (occurrence: None)
  Receive Date: 20111219
  Receipt Date: 20110812
  Transmission Date: 20120403
  Serious: No
  Sender: FDA-Public Use
  Company Number: US-ASTRAZENECA-2011SE48795

PATIENT
  Age: 42 Year
  Sex: Female

DRUGS (5)
  1. CRESTOR [Suspect]
     Route: 048
     Dates: start: 20091101, end: 20100101
  2. METFORMIN HCL [Concomitant]
  3. BIRTH CONTROL [Concomitant]
  4. FLEXERIL [Concomitant]
  5. LISINOPRIL [Concomitant]

REACTIONS (1)
  - CHEST PAIN [None]
